FAERS Safety Report 16530247 (Version 1)
Quarter: 2019Q3

REPORT INFORMATION
  Report Type: Report from Study
  Country: US (occurrence: US)
  Receive Date: 20190704
  Receipt Date: 20190704
  Transmission Date: 20191004
  Serious: Yes (Other)
  Sender: FDA-Public Use
  Company Number: US-TESARO-2018-TSO2608-US

PATIENT
  Age: 63 Year
  Sex: Female

DRUGS (3)
  1. ZEJULA [Suspect]
     Active Substance: NIRAPARIB
     Dosage: 200 MG, QD
     Route: 048
  2. ZEJULA [Suspect]
     Active Substance: NIRAPARIB
     Dosage: 100 MG, QPM WITH FOOD
     Route: 048
  3. ZEJULA [Suspect]
     Active Substance: NIRAPARIB
     Indication: OVARIAN CANCER
     Dosage: 300 MG, QD, IN THE AM WITH FOOD, 3 CAPSULES BY MOUTH ONCE DAILY
     Route: 048
     Dates: start: 20181212

REACTIONS (7)
  - Red blood cell count decreased [Unknown]
  - Urinary tract infection [Unknown]
  - Feeling abnormal [Recovering/Resolving]
  - Platelet count decreased [Unknown]
  - Vomiting [Unknown]
  - Ascites [Unknown]
  - Blood count abnormal [Unknown]

NARRATIVE: CASE EVENT DATE: 201812
